FAERS Safety Report 21566589 (Version 1)
Quarter: 2022Q4

REPORT INFORMATION
  Report Type: Spontaneous
  Country: US (occurrence: US)
  Receive Date: 20221108
  Receipt Date: 20221108
  Transmission Date: 20230113
  Serious: No
  Sender: FDA-Public Use
  Company Number: US-PFIZER INC-PV202200099051

PATIENT
  Age: 64 Year
  Sex: Female

DRUGS (4)
  1. IBRANCE [Suspect]
     Active Substance: PALBOCICLIB
     Indication: Breast cancer female
     Dosage: 125 MG, CYCLIC (TAKE 1 TABLET EVERY DAY FOR 21 DAYS FOLLOWED BY 7 DAYS OFF EVERY 28 DAY CYCLE)
     Route: 048
     Dates: start: 20210417
  2. LETROZOLE [Concomitant]
     Active Substance: LETROZOLE
     Dosage: 2.5 MG
  3. PRILOSEC [Concomitant]
     Active Substance: OMEPRAZOLE MAGNESIUM
     Dosage: 20 MG
  4. XGEVA [Concomitant]
     Active Substance: DENOSUMAB
     Dosage: 70.58 MG/ML (XGEVA 120MG/1.7ML )

REACTIONS (1)
  - Diarrhoea [Not Recovered/Not Resolved]
